FAERS Safety Report 16446337 (Version 1)
Quarter: 2019Q2

REPORT INFORMATION
  Report Type: Spontaneous
  Country: US (occurrence: US)
  Receive Date: 20190618
  Receipt Date: 20190618
  Transmission Date: 20190711
  Serious: No
  Sender: FDA-Public Use
  Company Number: US-009507513-1906USA002856

PATIENT
  Sex: Female

DRUGS (9)
  1. GANIRELIX ACETATE INJECTION [Suspect]
     Active Substance: GANIRELIX ACETATE
     Dosage: 250 MICROGRAM
     Route: 058
  2. DOXYCYCLINE. [Concomitant]
     Active Substance: DOXYCYCLINE
  3. ALBUTEROL. [Concomitant]
     Active Substance: ALBUTEROL
  4. ENDOMETRIN [Concomitant]
     Active Substance: PROGESTERONE
  5. OVIDREL [Concomitant]
     Active Substance: CHORIOGONADOTROPIN ALFA
  6. MENOPUR [Concomitant]
     Active Substance: FOLLITROPIN\LUTEINIZING HORMONE
  7. SINGULAIR [Concomitant]
     Active Substance: MONTELUKAST SODIUM
  8. AZELASTINE HYDROCHLORIDE. [Concomitant]
     Active Substance: AZELASTINE HYDROCHLORIDE
  9. FOLLISTIM [Suspect]
     Active Substance: FOLLITROPIN
     Indication: INFERTILITY FEMALE
     Dosage: UNK UNK, QD
     Route: 058
     Dates: start: 20190529

REACTIONS (1)
  - Erythema [Unknown]
